FAERS Safety Report 7691547-3 (Version None)
Quarter: 2011Q3

REPORT INFORMATION
  Report Type: 
  Country: None (occurrence: None)
  Receive Date: 20110818
  Receipt Date: 20110806
  Transmission Date: 20111222
  Serious: Yes (Hospitalization)
  Sender: FDA-Public Use
  Company Number: DE-UCBSA-038532

PATIENT
  Sex: Male
  Weight: 87 kg

DRUGS (2)
  1. KEPPRA [Suspect]
     Dosage: 25 TABLET MAXIMUM. TOTAL AMOUNT: 12500 MG
     Route: 048
     Dates: start: 20110801, end: 20110806
  2. METOPROLOL SUCCINATE [Suspect]
     Dosage: 15 TABLETS MAXIMUM. TOTAL: 712.5 MG
     Route: 048
     Dates: start: 20110801, end: 20110806

REACTIONS (5)
  - GASTROINTESTINAL SOUNDS ABNORMAL [None]
  - SUICIDE ATTEMPT [None]
  - DEPRESSION [None]
  - CONVULSION [None]
  - TACHYCARDIA [None]
